FAERS Safety Report 21753272 (Version 4)
Quarter: 2024Q4

REPORT INFORMATION
  Report Type: Spontaneous
  Country: CA (occurrence: None)
  Receive Date: 20221220
  Receipt Date: 20241010
  Transmission Date: 20250115
  Serious: Yes (Other)
  Sender: ORION
  Company Number: CA-Orion Corporation ORION PHARMA-TREX2016-1617

PATIENT
  Age: 49 Year
  Sex: Female

DRUGS (11)
  1. METHOTREXATE [Suspect]
     Active Substance: METHOTREXATE
     Indication: Rheumatoid arthritis
     Dates: end: 20171022
  2. METHOTREXATE [Suspect]
     Active Substance: METHOTREXATE
     Dates: start: 20171107, end: 2022
  3. XELJANZ [Suspect]
     Active Substance: TOFACITINIB CITRATE
     Indication: Rheumatoid arthritis
     Dates: start: 20160329, end: 20171024
  4. XELJANZ [Suspect]
     Active Substance: TOFACITINIB CITRATE
     Dates: start: 20171107, end: 2022
  5. XELJANZ [Suspect]
     Active Substance: TOFACITINIB CITRATE
  6. XELJANZ [Suspect]
     Active Substance: TOFACITINIB CITRATE
     Dosage: AS PER PATIENT (NO PRESCRIPTION ON FILE)
     Dates: start: 2022, end: 2022
  7. XELJANZ [Suspect]
     Active Substance: TOFACITINIB CITRATE
     Dates: start: 20221223
  8. RABEPRAZOLE [Concomitant]
     Active Substance: RABEPRAZOLE
     Indication: Abdominal discomfort
  9. RABEPRAZOLE [Concomitant]
     Active Substance: RABEPRAZOLE
  10. FOLIC ACID [Concomitant]
     Active Substance: FOLIC ACID
     Dosage: 3X/WEEK
  11. FOLIC ACID [Concomitant]
     Active Substance: FOLIC ACID

REACTIONS (5)
  - Nephrolithiasis [Recovered/Resolved]
  - Kidney infection [Recovered/Resolved]
  - Drug ineffective [Not Recovered/Not Resolved]
  - Abdominal discomfort [Recovered/Resolved]
  - Fatigue [Not Recovered/Not Resolved]

NARRATIVE: CASE EVENT DATE: 20160330
